FAERS Safety Report 8339873-9 (Version None)
Quarter: 2012Q2

REPORT INFORMATION
  Report Type: 
  Country: None (occurrence: None)
  Receive Date: 20120507
  Receipt Date: 20120502
  Transmission Date: 20120825
  Serious: Yes (Hospitalization)
  Sender: FDA-Public Use
  Company Number: BR-PFIZER INC-2012107952

PATIENT
  Age: 59 Year
  Sex: Female

DRUGS (6)
  1. ALENDRONATE SODIUM [Concomitant]
     Indication: MUSCULOSKELETAL PAIN
     Dosage: ONE TABLET WEEKLY
     Dates: start: 20060101
  2. CLONAZEPAM [Concomitant]
     Indication: SLEEP DISORDER
     Dosage: 8 DROPS AT NIGHT
     Dates: start: 20060101
  3. SERTRALINE HYDROCHLORIDE [Suspect]
     Dosage: UNK
     Dates: end: 20120401
  4. CELEBREX [Suspect]
     Dosage: 200 MG, 1X/DAY
     Route: 048
     Dates: end: 20111101
  5. ABLOCK PLUS [Concomitant]
     Indication: HYPERTENSION
     Dosage: ONE TABLET DAILY
  6. OSCAL D [Concomitant]
     Indication: MINERAL SUPPLEMENTATION
     Dosage: ONE TABLET AFTER LUNCH
     Dates: start: 20060101

REACTIONS (2)
  - FALL [None]
  - HYPERHIDROSIS [None]
